FAERS Safety Report 5190073-3 (Version None)
Quarter: 2006Q4

REPORT INFORMATION
  Report Type: 
  Country: None (occurrence: None)
  Receive Date: 20061222
  Receipt Date: 20060911
  Transmission Date: 20070319
  Serious: Yes (Hospitalization, Other)
  Sender: FDA-Public Use
  Company Number: PHNU2006DE03088

PATIENT
  Age: 47 Year
  Sex: Male
  Weight: 97.5 kg

DRUGS (19)
  1. PANTOZOL [Concomitant]
  2. CITALOPRAM HYDROBROMIDE [Concomitant]
  3. COLECALCIFEROL [Concomitant]
  4. CALCIUM [Concomitant]
  5. VITAMIN E [Concomitant]
  6. ALNA [Concomitant]
  7. OXCARBAZEPINE [Concomitant]
  8. SIMVASTATIN [Concomitant]
  9. MAGNETRANS FORTE [Concomitant]
  10. ASCORBIC ACID [Concomitant]
  11. VITAMIN B COMPLEX CAP [Concomitant]
  12. VIDISEPT [Concomitant]
  13. TEGRETOL [Suspect]
     Indication: PARAESTHESIA
     Dosage: 400 MG, TID
     Route: 048
  14. CARBAMAZEPINE [Concomitant]
  15. SIRDALUD [Concomitant]
  16. MAGNETRANS [Concomitant]
     Dosage: 1 DF, TID
  17. DETRUSITOL [Concomitant]
  18. KATADOLON [Concomitant]
  19. MINIRIN [Concomitant]

REACTIONS (20)
  - BLOOD SODIUM DECREASED [None]
  - BLOOD THYROID STIMULATING HORMONE INCREASED [None]
  - BONE DENSITOMETRY [None]
  - BONE DENSITY DECREASED [None]
  - COORDINATION ABNORMAL [None]
  - DYSAESTHESIA [None]
  - GAMMA-GLUTAMYLTRANSFERASE INCREASED [None]
  - LYMPHOCYTE PERCENTAGE INCREASED [None]
  - MULTIPLE SCLEROSIS [None]
  - MUSCLE SPASMS [None]
  - MUSCULAR WEAKNESS [None]
  - NOCTURIA [None]
  - OSTEOPENIA [None]
  - PAIN IN EXTREMITY [None]
  - PARAPARESIS [None]
  - RED BLOOD CELL COUNT INCREASED [None]
  - THYROXINE FREE DECREASED [None]
  - URINARY INCONTINENCE [None]
  - VENTRICULAR HYPERTROPHY [None]
  - VISION BLURRED [None]
